FAERS Safety Report 5428936-3 (Version None)
Quarter: 2007Q3

REPORT INFORMATION
  Report Type: 
  Country: None (occurrence: None)
  Receive Date: 20070827
  Receipt Date: 20070816
  Transmission Date: 20080115
  Serious: Yes (Hospitalization, Other)
  Sender: FDA-Public Use
  Company Number: 2007SP016978

PATIENT
  Age: 61 Year
  Sex: Female
  Weight: 82.1 kg

DRUGS (8)
  1. INTEGRILIN [Suspect]
     Indication: DRUG USE FOR UNKNOWN INDICATION
     Dosage: 6 MG; ONCE; INBO, 13 ML; QH; INDRP
     Dates: start: 20070622, end: 20070622
  2. INTEGRILIN [Suspect]
     Indication: DRUG USE FOR UNKNOWN INDICATION
     Dosage: 6 MG; ONCE; INBO, 13 ML; QH; INDRP
     Dates: start: 20070622, end: 20070622
  3. ANGIOMAX [Suspect]
     Indication: PERCUTANEOUS CORONARY INTERVENTION
     Dosage: 61.5 MG; ONCE; INBO, 28 ML; QH; INBO
     Dates: start: 20070622, end: 20070622
  4. ANGIOMAX [Suspect]
     Indication: PERCUTANEOUS CORONARY INTERVENTION
     Dosage: 61.5 MG; ONCE; INBO, 28 ML; QH; INBO
     Dates: start: 20070622, end: 20070622
  5. ATROPINE [Suspect]
     Dosage: 1 MG; ONCE; IV
     Route: 042
     Dates: start: 20070622, end: 20070622
  6. EPINEPHRINE [Suspect]
     Dosage: 1 MG; ONCE; IV
     Route: 042
     Dates: start: 20070622, end: 20070622
  7. HEPARIN [Suspect]
     Dosage: 5000 IU; ONCE; INBO
     Route: 040
     Dates: start: 20070622, end: 20070622
  8. ASPIRIN [Concomitant]

REACTIONS (3)
  - CARDIAC ARREST [None]
  - VENTRICULAR FIBRILLATION [None]
  - VOMITING [None]
